FAERS Safety Report 16622369 (Version 6)
Quarter: 2019Q3

REPORT INFORMATION
  Report Type: Spontaneous
  Country: US (occurrence: US)
  Receive Date: 20190724
  Receipt Date: 20190918
  Transmission Date: 20191004
  Serious: No
  Sender: FDA-Public Use
  Company Number: US-UNITED THERAPEUTICS-UNT-2019-010734

PATIENT
  Age: 50 Year
  Sex: Female
  Weight: 88.89 kg

DRUGS (5)
  1. REMODULIN [Suspect]
     Active Substance: TREPROSTINIL
     Dosage: 0.018 ?G/KG, CONTINUING
     Route: 041
  2. AMBRISENTAN [Concomitant]
     Active Substance: AMBRISENTAN
     Indication: PRODUCT USED FOR UNKNOWN INDICATION
     Dosage: UNK
     Route: 065
  3. REMODULIN [Suspect]
     Active Substance: TREPROSTINIL
     Dosage: 0.011 ?G/KG, CONTINUING
     Route: 041
  4. REMODULIN [Suspect]
     Active Substance: TREPROSTINIL
     Indication: PULMONARY ARTERIAL HYPERTENSION
     Dosage: 0.010 ?G/KG, CONTINUING
     Route: 041
     Dates: start: 20190529
  5. REMODULIN [Suspect]
     Active Substance: TREPROSTINIL
     Dosage: 0.016 ?G/KG, CONTINUING
     Route: 041

REACTIONS (31)
  - Eye pruritus [Unknown]
  - Arthralgia [Unknown]
  - Diarrhoea [Not Recovered/Not Resolved]
  - Migraine [Not Recovered/Not Resolved]
  - Palpitations [Unknown]
  - Eye pain [Unknown]
  - Dizziness [Unknown]
  - Pain [Unknown]
  - Dyspnoea exertional [Not Recovered/Not Resolved]
  - Ocular discomfort [Unknown]
  - Oropharyngeal pain [Unknown]
  - Dyspnoea [Not Recovered/Not Resolved]
  - Agitation [Unknown]
  - Tremor [Unknown]
  - Pain in jaw [Not Recovered/Not Resolved]
  - Flushing [Unknown]
  - Nausea [Unknown]
  - Gingival bleeding [Unknown]
  - Depression [Unknown]
  - Oedema peripheral [Unknown]
  - Chest pain [Unknown]
  - Pain in extremity [Unknown]
  - Rash [Unknown]
  - Nasal congestion [Unknown]
  - Incision site complication [Unknown]
  - Vision blurred [Unknown]
  - Back pain [Unknown]
  - Fatigue [Unknown]
  - Cough [Not Recovered/Not Resolved]
  - Dry throat [Unknown]
  - Productive cough [Unknown]

NARRATIVE: CASE EVENT DATE: 2019
